FAERS Safety Report 10065600 (Version 1)
Quarter: 2014Q2

REPORT INFORMATION
  Report Type: Spontaneous
  Country: US (occurrence: US)
  Receive Date: 20140408
  Receipt Date: 20140408
  Transmission Date: 20141212
  Serious: Yes (Life-Threatening, Hospitalization)
  Sender: FDA-Public Use
  Company Number: US-SA-2014SA012649

PATIENT
  Sex: Female

DRUGS (1)
  1. ELITEK [Suspect]
     Route: 065

REACTIONS (1)
  - Methaemoglobinaemia [Unknown]
